FAERS Safety Report 9109652 (Version 2)
Quarter: 2013Q2

REPORT INFORMATION
  Report Type: Spontaneous
  Country: AT (occurrence: AT)
  Receive Date: 20130222
  Receipt Date: 20130509
  Transmission Date: 20140414
  Serious: Yes (Other)
  Sender: FDA-Public Use
  Company Number: AT-BRISTOL-MYERS SQUIBB COMPANY-17387283

PATIENT
  Age: 79 Year
  Sex: Female

DRUGS (5)
  1. ORENCIA [Suspect]
     Indication: RHEUMATOID ARTHRITIS
     Route: 042
     Dates: start: 20120207, end: 20120711
  2. ORENCIA [Suspect]
     Indication: POLYARTHRITIS
     Route: 042
     Dates: start: 20120207, end: 20120711
  3. METHOTREXATE [Suspect]
  4. CONCOR [Concomitant]
  5. ACCUZIDE [Concomitant]
     Dosage: 1DF: QUINA 20MG + HCTZ 12.5MG.

REACTIONS (1)
  - Hypertensive crisis [Recovered/Resolved]
